FAERS Safety Report 9293443 (Version 1)
Quarter: 2013Q2

REPORT INFORMATION
  Report Type: Spontaneous
  Country: US (occurrence: US)
  Receive Date: 20130516
  Receipt Date: 20130516
  Transmission Date: 20140414
  Serious: No
  Sender: FDA-Public Use
  Company Number: US-ASTRAZENECA-2013SE31572

PATIENT
  Sex: Female
  Weight: 55.3 kg

DRUGS (5)
  1. ENTOCORT EC [Suspect]
     Route: 048
  2. SIMVASTATIN [Concomitant]
  3. TRAZADONE [Concomitant]
  4. PROLEA [Concomitant]
  5. MULTIVITAMIN [Concomitant]

REACTIONS (2)
  - Urine abnormality [Unknown]
  - Urine odour abnormal [Unknown]
